FAERS Safety Report 6897762-0 (Version None)
Quarter: 2010Q3

REPORT INFORMATION
  Report Type: 
  Country: None (occurrence: None)
  Receive Date: 20100802
  Receipt Date: 20070716
  Transmission Date: 20110219
  Serious: No
  Sender: FDA-Public Use
  Company Number: US-PFIZER INC-2007028948

PATIENT
  Age: 60 Year
  Sex: Female
  Weight: 49.9 kg

DRUGS (6)
  1. LYRICA [Suspect]
     Indication: SCIATICA
     Route: 048
     Dates: start: 20070401, end: 20070413
  2. CELEBREX [Suspect]
     Route: 048
     Dates: start: 20070403, end: 20070413
  3. LIPITOR [Concomitant]
     Indication: BLOOD CHOLESTEROL INCREASED
  4. TOPROL-XL [Concomitant]
     Indication: HYPERTENSION
  5. MICARDIS [Concomitant]
     Indication: HYPERTENSION
  6. HYDROCHLOROTHIAZIDE [Concomitant]
     Indication: HYPERTENSION

REACTIONS (1)
  - DRUG ERUPTION [None]
